FAERS Safety Report 13962813 (Version 1)
Quarter: 2017Q3

REPORT INFORMATION
  Report Type: Spontaneous
  Country: US (occurrence: US)
  Receive Date: 20170913
  Receipt Date: 20170913
  Transmission Date: 20171128
  Serious: Yes (Hospitalization)
  Sender: FDA-Public Use
  Company Number: US-ENDO PHARMACEUTICALS INC-2017-004814

PATIENT
  Sex: Female

DRUGS (1)
  1. OXYCODONE HYDROCHLORIDE. [Suspect]
     Active Substance: OXYCODONE HYDROCHLORIDE
     Indication: PRODUCT USED FOR UNKNOWN INDICATION
     Dosage: UNK UNK, UNKNOWN
     Route: 048

REACTIONS (9)
  - Leukocytosis [Unknown]
  - Toxicity to various agents [Unknown]
  - Respiratory failure [Recovered/Resolved]
  - Brain oedema [Recovered/Resolved]
  - Accidental overdose [Unknown]
  - Hydrocephalus [Recovered/Resolved]
  - Brain herniation [Recovered/Resolved with Sequelae]
  - Transaminases increased [Unknown]
  - Cerebellar ischaemia [Recovered/Resolved with Sequelae]
